FAERS Safety Report 6772422-5 (Version None)
Quarter: 2010Q2

REPORT INFORMATION
  Report Type: 
  Country: None (occurrence: None)
  Receive Date: 20100616
  Receipt Date: 20100412
  Transmission Date: 20101027
  Serious: No
  Sender: FDA-Public Use
  Company Number: US-ASTRAZENECA-2010SE06437

PATIENT
  Age: 70 Year
  Sex: Male
  Weight: 67.1 kg

DRUGS (7)
  1. PULMICORT FLEXHALER [Suspect]
     Indication: CHRONIC OBSTRUCTIVE PULMONARY DISEASE
     Route: 055
     Dates: start: 20100207
  2. FORADIL [Concomitant]
  3. SPIRIVA [Concomitant]
  4. LIPITOR [Concomitant]
  5. BENECAR [Concomitant]
  6. SINGULAIR [Concomitant]
  7. ZOPINEX [Concomitant]

REACTIONS (11)
  - ABDOMINAL DISTENSION [None]
  - BRONCHITIS [None]
  - CHRONIC SINUSITIS [None]
  - DECREASED APPETITE [None]
  - DYSPNOEA [None]
  - EMPHYSEMA [None]
  - ERYTHEMA [None]
  - FEELING OF BODY TEMPERATURE CHANGE [None]
  - PERIANAL ERYTHEMA [None]
  - PRODUCTIVE COUGH [None]
  - RASH [None]
